FAERS Safety Report 25548626 (Version 1)
Quarter: 2025Q3

REPORT INFORMATION
  Report Type: Spontaneous
  Country: EU (occurrence: EU)
  Receive Date: 20250714
  Receipt Date: 20250714
  Transmission Date: 20251021
  Serious: Yes (Hospitalization, Other)
  Sender: MERCK SHARP & DOHME LLC
  Company Number: None

PATIENT
  Age: 58 Year
  Sex: Male
  Weight: 93.5 kg

DRUGS (6)
  1. KEYTRUDA [Suspect]
     Active Substance: PEMBROLIZUMAB
     Indication: Clear cell renal cell carcinoma
     Dosage: 3 WEEK INTERVAL, IN TOTAL 6 CYCLES ADMINISTERED
     Route: 042
     Dates: start: 20250306, end: 20250619
  2. Sectral 400mg [Concomitant]
  3. Sortis 20mg [Concomitant]
  4. LENVATINIB MESYLATE [Suspect]
     Active Substance: LENVATINIB MESYLATE
     Indication: Clear cell renal cell carcinoma
     Route: 048
     Dates: start: 20250307
  5. Helicide 20mg [Concomitant]
  6. Focusin 0.4mg [Concomitant]

REACTIONS (2)
  - Diarrhoea haemorrhagic [Recovering/Resolving]
  - Skin lesion [Unknown]

NARRATIVE: CASE EVENT DATE: 20250501
